FAERS Safety Report 17813159 (Version 5)
Quarter: 2020Q3

REPORT INFORMATION
  Report Type: Report from Study
  Country: US (occurrence: US)
  Receive Date: 20200521
  Receipt Date: 20200813
  Transmission Date: 20201102
  Serious: Yes (Hospitalization)
  Sender: FDA-Public Use
  Company Number: US-ACTELION-A-NJ2020-204943

PATIENT
  Sex: Female
  Weight: 120.18 kg

DRUGS (5)
  1. REMODULIN [Concomitant]
     Active Substance: TREPROSTINIL
     Route: 058
  2. TREPROSTINIL. [Concomitant]
     Active Substance: TREPROSTINIL
     Indication: PRODUCT USED FOR UNKNOWN INDICATION
     Route: 065
  3. ADCIRCA [Concomitant]
     Active Substance: TADALAFIL
  4. OPSUMIT [Suspect]
     Active Substance: MACITENTAN
     Indication: PULMONARY ARTERIAL HYPERTENSION
     Dosage: 10 MG, QD
     Route: 048
  5. UPTRAVI [Suspect]
     Active Substance: SELEXIPAG
     Indication: PULMONARY ARTERIAL HYPERTENSION
     Dosage: 1600 MCG, BID
     Route: 048

REACTIONS (14)
  - Catheter site pain [Unknown]
  - Dyspnoea exertional [Unknown]
  - Infusion site pustule [Recovered/Resolved]
  - Vascular device infection [Unknown]
  - Catheter removal [Unknown]
  - Dyspnoea at rest [Unknown]
  - Nausea [Unknown]
  - Catheter site papule [Unknown]
  - Sleep disorder [Unknown]
  - Condition aggravated [Unknown]
  - Chest pain [Unknown]
  - Decreased appetite [Unknown]
  - Malaise [Unknown]
  - Pain in extremity [Unknown]
